FAERS Safety Report 11047107 (Version 1)
Quarter: 2015Q2

REPORT INFORMATION
  Report Type: Spontaneous
  Country: QA (occurrence: QA)
  Receive Date: 20150420
  Receipt Date: 20150420
  Transmission Date: 20150821
  Serious: Yes (Hospitalization)
  Sender: FDA-Public Use
  Company Number: QA-CIPLA LTD.-2015QA02946

PATIENT

DRUGS (3)
  1. ALBUTEROL SULFATE/IPRATROPIUM BROMIDE [Suspect]
     Active Substance: ALBUTEROL SULFATE\IPRATROPIUM BROMIDE
     Dosage: 3 DOSES OF NEBULIZED 1 ML ALBUTEROL (5 MG/ML) WITH 250 MCG IPRATROPIUM BROMIDE
  2. METHYLPREDNISONE [Suspect]
     Active Substance: METHYLPREDNISOLONE
     Dosage: 1 MG/KG, EVERY 12 HR
     Route: 042
  3. MAGNESIUM SULFATE. [Suspect]
     Active Substance: MAGNESIUM SULFATE
     Dosage: 800 MCG, NEBULIZATION OF THREE 5-ML DOSES OF MAGNESIUM SULFATE

REACTIONS (1)
  - Hospitalisation [Unknown]
